FAERS Safety Report 4317840-X (Version None)
Quarter: 2004Q1

REPORT INFORMATION
  Report Type: 
  Country: None (occurrence: None)
  Receive Date: 20040316
  Receipt Date: 20040310
  Transmission Date: 20041129
  Serious: Yes (Life-Threatening, Hospitalization)
  Sender: FDA-Public Use
  Company Number: 200410789EU

PATIENT
  Age: 87 Year
  Sex: Female

DRUGS (3)
  1. SEGURIL [Suspect]
     Route: 048
     Dates: end: 20030710
  2. CAPOTEN [Concomitant]
     Route: 048
     Dates: end: 20030731
  3. ADIRO [Concomitant]
     Dates: end: 20030731

REACTIONS (1)
  - RENAL FAILURE ACUTE [None]
